FAERS Safety Report 18213512 (Version 1)
Quarter: 2020Q3

REPORT INFORMATION
  Report Type: Spontaneous
  Country: US (occurrence: US)
  Receive Date: 20200831
  Receipt Date: 20200831
  Transmission Date: 20201103
  Serious: Yes (Other)
  Sender: FDA-Public Use
  Company Number: US-PFIZER INC-2020331968

PATIENT
  Age: 67 Year
  Sex: Female
  Weight: 64.41 kg

DRUGS (2)
  1. PREMPRO [Suspect]
     Active Substance: ESTROGENS, CONJUGATED\MEDROXYPROGESTERONE ACETATE
     Indication: PROPHYLAXIS
  2. PREMPRO [Suspect]
     Active Substance: ESTROGENS, CONJUGATED\MEDROXYPROGESTERONE ACETATE
     Indication: HOT FLUSH
     Dosage: 0.625MG OR 2.5 MG; TAKE ONE TABLET EVERY OTHER DAY)

REACTIONS (6)
  - Drug ineffective [Unknown]
  - Vaginal discharge [Unknown]
  - Off label use [Unknown]
  - Vaginal haemorrhage [Unknown]
  - Osteoporosis [Unknown]
  - Breast pain [Unknown]

NARRATIVE: CASE EVENT DATE: 20200823
